FAERS Safety Report 21101264 (Version 1)
Quarter: 2022Q3

REPORT INFORMATION
  Report Type: Spontaneous
  Country: US (occurrence: None)
  Receive Date: 20220719
  Receipt Date: 20220719
  Transmission Date: 20221026
  Serious: Yes (Other)
  Sender: FDA-Public Use
  Company Number: 2022A253439

PATIENT
  Age: 894 Month
  Sex: Female
  Weight: 1.4 kg

DRUGS (1)
  1. BYDUREON BCISE [Suspect]
     Active Substance: EXENATIDE
     Indication: Type 2 diabetes mellitus
     Route: 058
     Dates: start: 2021

REACTIONS (9)
  - Loss of consciousness [Unknown]
  - Breast cancer [Unknown]
  - Back pain [Unknown]
  - Mobility decreased [Unknown]
  - Fall [Unknown]
  - Body height decreased [Unknown]
  - Blood glucose increased [Recovering/Resolving]
  - Wrong technique in device usage process [Unknown]
  - Device delivery system issue [Unknown]

NARRATIVE: CASE EVENT DATE: 20220101
